FAERS Safety Report 19517167 (Version 1)
Quarter: 2021Q3

REPORT INFORMATION
  Report Type: Spontaneous
  Country: US (occurrence: US)
  Receive Date: 20210712
  Receipt Date: 20210712
  Transmission Date: 20211014
  Serious: No
  Sender: FDA-Public Use
  Company Number: US-GLAXOSMITHKLINE-USCH2021044450

PATIENT
  Sex: Male

DRUGS (1)
  1. ADVIL LIQUI?GELS [Suspect]
     Active Substance: IBUPROFEN
     Indication: ARTHRITIS

REACTIONS (3)
  - Drug ineffective for unapproved indication [Unknown]
  - Abdominal discomfort [Unknown]
  - Burning sensation [Unknown]
